FAERS Safety Report 8804940 (Version 2)
Quarter: 2015Q2

REPORT INFORMATION
  Report Type: Report from Study
  Country: US (occurrence: US)
  Receive Date: 20120924
  Receipt Date: 20150620
  Transmission Date: 20150821
  Serious: Yes (Death)
  Sender: FDA-Public Use
  Company Number: US-ROCHE-1126316

PATIENT
  Age: 73 Year
  Sex: Male

DRUGS (5)
  1. ARANESP [Concomitant]
     Active Substance: DARBEPOETIN ALFA
     Route: 065
  2. AVASTIN [Suspect]
     Active Substance: BEVACIZUMAB
     Indication: MALIGNANT RESPIRATORY TRACT NEOPLASM
     Route: 042
  3. ZOMETA [Concomitant]
     Active Substance: ZOLEDRONIC ACID
     Route: 042
  4. AVASTIN [Suspect]
     Active Substance: BEVACIZUMAB
     Indication: HEAD AND NECK CANCER
  5. TAXOTERE [Concomitant]
     Active Substance: DOCETAXEL

REACTIONS (2)
  - Death [Fatal]
  - Off label use [Unknown]

NARRATIVE: CASE EVENT DATE: 200607
